FAERS Safety Report 10979333 (Version 3)
Quarter: 2015Q3

REPORT INFORMATION
  Report Type: Spontaneous
  Country: DE (occurrence: DE)
  Receive Date: 20150402
  Receipt Date: 20150716
  Transmission Date: 20151125
  Serious: Yes (Other)
  Sender: FDA-Public Use
  Company Number: DE-PFIZER INC-2015110300

PATIENT
  Age: 2 Year
  Sex: Female

DRUGS (7)
  1. CLONAZEPAM. [Suspect]
     Active Substance: CLONAZEPAM
     Indication: COMPLEX PARTIAL SEIZURES
  2. VALPROIC ACID. [Suspect]
     Active Substance: VALPROIC ACID
     Indication: COMPLEX PARTIAL SEIZURES
  3. PHENYTOIN. [Suspect]
     Active Substance: PHENYTOIN
     Dosage: 200 MG, DAILY
     Dates: end: 1981
  4. VALPROIC ACID. [Suspect]
     Active Substance: VALPROIC ACID
     Indication: ATONIC SEIZURES
  5. PHENYTOIN. [Suspect]
     Active Substance: PHENYTOIN
     Indication: COMPLEX PARTIAL SEIZURES
     Dosage: 225 MG, DAILY
  6. PHENYTOIN. [Suspect]
     Active Substance: PHENYTOIN
     Indication: ATONIC SEIZURES
     Dosage: 150 MG, DAILY
     Dates: start: 1976
  7. CLONAZEPAM. [Suspect]
     Active Substance: CLONAZEPAM
     Indication: ATONIC SEIZURES

REACTIONS (6)
  - Ataxia [Recovering/Resolving]
  - Anticonvulsant drug level above therapeutic [Recovered/Resolved]
  - Hypotonia [Recovering/Resolving]
  - Drug effect incomplete [Unknown]
  - Toxicity to various agents [Recovering/Resolving]
  - Cerebellar atrophy [Unknown]

NARRATIVE: CASE EVENT DATE: 1976
